FAERS Safety Report 6247944-6 (Version None)
Quarter: 2009Q2

REPORT INFORMATION
  Report Type: 
  Country: None (occurrence: None)
  Receive Date: 20090626
  Receipt Date: 20090616
  Transmission Date: 20091009
  Serious: Yes (Hospitalization)
  Sender: FDA-Public Use
  Company Number: US-BAXTER-2009BH010160

PATIENT
  Age: 77 Year
  Sex: Female

DRUGS (4)
  1. DIANEAL [Suspect]
     Indication: PERITONEAL DIALYSIS
     Route: 033
     Dates: start: 20090501, end: 20090617
  2. COREG [Concomitant]
     Indication: CARDIAC DISORDER
     Route: 065
  3. AMLODIPINE [Concomitant]
     Indication: BLOOD PRESSURE
     Route: 065
  4. VALSARTAN [Concomitant]
     Indication: BLOOD PRESSURE
     Route: 065

REACTIONS (3)
  - DYSPNOEA [None]
  - MALAISE [None]
  - PLEURAL DISORDER [None]
